FAERS Safety Report 5048230-2 (Version None)
Quarter: 2006Q2

REPORT INFORMATION
  Report Type: 
  Country: None (occurrence: None)
  Receive Date: 20060601
  Receipt Date: 20060216
  Transmission Date: 20061013
  Serious: No
  Sender: FDA-Public Use
  Company Number: 2006PV008858

PATIENT
  Age: 61 Year
  Sex: Female
  Weight: 104.3273 kg

DRUGS (13)
  1. BYETTA [Suspect]
     Indication: DIABETES MELLITUS NON-INSULIN-DEPENDENT
     Dosage: SEE IMAGE
     Route: 058
     Dates: start: 20050831, end: 20050930
  2. BYETTA [Suspect]
     Indication: DIABETES MELLITUS NON-INSULIN-DEPENDENT
     Dosage: SEE IMAGE
     Route: 058
     Dates: start: 20051001
  3. METFORMIN [Concomitant]
  4. AMARYL [Concomitant]
  5. LOPRESSOR [Concomitant]
  6. LASIX [Concomitant]
  7. ALDACTONE [Concomitant]
  8. SINGULAIR [Concomitant]
  9. NIFEDIPINE [Concomitant]
  10. 2-ESTPROPREGTESNTX ERGOCAL [Concomitant]
  11. MOBIC [Concomitant]
  12. CALCIUM PLUS D [Concomitant]
  13. TRICOR [Concomitant]

REACTIONS (2)
  - DENTAL PLAQUE [None]
  - TOOTH DEPOSIT [None]
